FAERS Safety Report 19935995 (Version 2)
Quarter: 2021Q4

REPORT INFORMATION
  Report Type: Spontaneous
  Country: JP (occurrence: JP)
  Receive Date: 20211008
  Receipt Date: 20211123
  Transmission Date: 20220303
  Serious: Yes (Death, Other)
  Sender: FDA-Public Use
  Company Number: JP-009507513-2110JPN000171

PATIENT
  Age: 63 Year
  Sex: Male

DRUGS (2)
  1. FIDAXOMICIN [Suspect]
     Active Substance: FIDAXOMICIN
     Indication: Clostridium difficile infection
     Dosage: 400 MG/DAY, UNKNOWN FREQ
     Route: 048
     Dates: start: 20210913
  2. VANCOMYCIN [Concomitant]
     Active Substance: VANCOMYCIN
     Indication: Clostridium difficile infection
     Dosage: UNK UNK, UNKNOWN FREQ
     Route: 065

REACTIONS (1)
  - COVID-19 pneumonia [Fatal]
